FAERS Safety Report 8934835 (Version 1)
Quarter: 2012Q4

REPORT INFORMATION
  Report Type: 
  Country: US (occurrence: US)
  Receive Date: 20121129
  Receipt Date: 20121129
  Transmission Date: 20130627
  Serious: No
  Sender: FDA-Public Use
  Company Number: US-ASTRAZENECA-2012SE85764

PATIENT
  Age: 50 Year
  Sex: Female
  Weight: 88.5 kg

DRUGS (1)
  1. CRESTOR [Suspect]
     Route: 048

REACTIONS (6)
  - Hyperlipidaemia [Unknown]
  - Menstruation irregular [Unknown]
  - Oedema peripheral [Unknown]
  - Menopausal symptoms [Unknown]
  - Venous insufficiency [Unknown]
  - Depression [Unknown]
